FAERS Safety Report 19945771 (Version 1)
Quarter: 2021Q4

REPORT INFORMATION
  Report Type: Spontaneous
  Country: JP (occurrence: JP)
  Receive Date: 20211012
  Receipt Date: 20211012
  Transmission Date: 20220303
  Serious: Yes (Death)
  Sender: FDA-Public Use
  Company Number: JP-PFIZER INC-202101299332

PATIENT
  Age: 8 Decade
  Sex: Male
  Weight: 70.2 kg

DRUGS (2)
  1. DOCETAXEL [Suspect]
     Active Substance: DOCETAXEL
     Indication: Non-small cell lung cancer
     Dosage: UNK
     Dates: start: 20200513, end: 20200930
  2. RAMUCIRUMAB [Suspect]
     Active Substance: RAMUCIRUMAB
     Indication: Non-small cell lung cancer
     Dosage: UNK
     Dates: start: 20200513, end: 20200930

REACTIONS (1)
  - Death [Fatal]
